FAERS Safety Report 13714488 (Version 2)
Quarter: 2017Q3

REPORT INFORMATION
  Report Type: Spontaneous
  Country: AR (occurrence: AR)
  Receive Date: 20170704
  Receipt Date: 20170710
  Transmission Date: 20171127
  Serious: Yes (Life-Threatening, Disabling)
  Sender: FDA-Public Use
  Company Number: PHHY2017AR096924

PATIENT
  Age: 69 Year
  Sex: Female

DRUGS (1)
  1. ACLASTA [Suspect]
     Active Substance: ZOLEDRONIC ACID
     Indication: PRODUCT USED FOR UNKNOWN INDICATION
     Dosage: UNK
     Route: 065
     Dates: start: 20161116

REACTIONS (19)
  - Cardiac disorder [Unknown]
  - Osteopenia [Unknown]
  - Osteoporosis [Unknown]
  - Oedema peripheral [Not Recovered/Not Resolved]
  - Pain [Unknown]
  - Myalgia [Unknown]
  - Gastrooesophageal reflux disease [Unknown]
  - Mood altered [Unknown]
  - Limb discomfort [Recovered/Resolved]
  - Gait disturbance [Unknown]
  - Discomfort [Not Recovered/Not Resolved]
  - Peripheral swelling [Unknown]
  - Chills [Unknown]
  - Influenza [Not Recovered/Not Resolved]
  - Apparent death [Unknown]
  - Malaise [Unknown]
  - Joint swelling [Not Recovered/Not Resolved]
  - Crying [Unknown]
  - Pain in extremity [Unknown]
